FAERS Safety Report 7175565-X (Version None)
Quarter: 2010Q4

REPORT INFORMATION
  Report Type: 
  Country: None (occurrence: None)
  Receive Date: 20101220
  Receipt Date: 20100322
  Transmission Date: 20110411
  Serious: No
  Sender: FDA-Public Use
  Company Number: US-AMGEN-TCS401435

PATIENT

DRUGS (5)
  1. ENBREL [Suspect]
     Indication: RHEUMATOID ARTHRITIS
     Dosage: 50 MG, QWK
     Route: 058
     Dates: start: 20041107
  2. METHOTREXATE [Concomitant]
     Dosage: 10 MG, QWK
  3. FOLIC ACID [Concomitant]
     Dosage: 1 MG, QD
  4. ALENDRONATE SODIUM [Concomitant]
     Dosage: 35 MG, QWK
  5. CALCIUM CARBONATE [Concomitant]
     Dosage: UNK UNK, BID

REACTIONS (15)
  - CHEST INJURY [None]
  - ECCHYMOSIS [None]
  - FACE INJURY [None]
  - FACIAL BONES FRACTURE [None]
  - FALL [None]
  - JOINT CREPITATION [None]
  - JOINT INJURY [None]
  - MUSCULOSKELETAL CHEST PAIN [None]
  - OSTEOARTHRITIS [None]
  - OSTEOPENIA [None]
  - RIB FRACTURE [None]
  - SCAB [None]
  - SKELETAL INJURY [None]
  - SKIN PLAQUE [None]
  - SYNCOPE [None]
